FAERS Safety Report 21332880 (Version 6)
Quarter: 2023Q1

REPORT INFORMATION
  Report Type: Report from Study
  Country: US (occurrence: US)
  Receive Date: 20220914
  Receipt Date: 20230303
  Transmission Date: 20230418
  Serious: Yes (Hospitalization)
  Sender: FDA-Public Use
  Company Number: US-NOVARTISTESTPH-NVSC2022US206576

PATIENT
  Age: 29 Year
  Sex: Male

DRUGS (1)
  1. KESIMPTA [Suspect]
     Active Substance: OFATUMUMAB
     Indication: Multiple sclerosis
     Dosage: 20 MG, QMO
     Route: 058
     Dates: start: 202209

REACTIONS (13)
  - COVID-19 [Unknown]
  - Muscular weakness [Unknown]
  - Hypersensitivity [Unknown]
  - Rhinorrhoea [Unknown]
  - Influenza like illness [Recovering/Resolving]
  - Chills [Unknown]
  - Hypokinesia [Unknown]
  - Pyrexia [Unknown]
  - Asthenia [Unknown]
  - Feeling hot [Unknown]
  - Injection site haemorrhage [Unknown]
  - Anaemia [Unknown]
  - Peripheral coldness [Unknown]

NARRATIVE: CASE EVENT DATE: 20220908
